APPROVED DRUG PRODUCT: EPCLUSA
Active Ingredient: SOFOSBUVIR; VELPATASVIR
Strength: 200MG;50MG
Dosage Form/Route: TABLET;ORAL
Application: N208341 | Product #002
Applicant: GILEAD SCIENCES INC
Approved: Mar 19, 2020 | RLD: Yes | RS: No | Type: RX

PATENTS:
Patent 7964580 | Expires: Mar 26, 2029
Patent 8334270 | Expires: Mar 21, 2028
Patent 8575135 | Expires: Nov 16, 2032
Patent 8580765 | Expires: Mar 21, 2028
Patent 8618076 | Expires: Dec 11, 2030
Patent 8735372 | Expires: Mar 21, 2028
Patent 8889159 | Expires: Mar 26, 2029
Patent 9085573 | Expires: Mar 21, 2028
Patent 8921341 | Expires: Nov 16, 2032
Patent 8633309 | Expires: Mar 26, 2029
Patent 8940718 | Expires: Nov 16, 2032
Patent 9284342 | Expires: Sep 13, 2030
Patent 10086011 | Expires: Jan 30, 2034
Patent 11116783 | Expires: Jan 30, 2034
Patent 9757406 | Expires: Jan 30, 2034
Patent 7964580*PED | Expires: Sep 26, 2029
Patent 8334270*PED | Expires: Sep 21, 2028
Patent 8575135*PED | Expires: May 16, 2033
Patent 8580765*PED | Expires: Sep 21, 2028
Patent 8618076*PED | Expires: Jun 11, 2031
Patent 8735372*PED | Expires: Sep 21, 2028
Patent 8889159*PED | Expires: Sep 26, 2029
Patent 9085573*PED | Expires: Sep 21, 2028
Patent 8921341*PED | Expires: May 16, 2033
Patent 8633309*PED | Expires: Sep 26, 2029
Patent 8940718*PED | Expires: May 16, 2033
Patent 9284342*PED | Expires: Mar 13, 2031
Patent 10086011*PED | Expires: Jul 30, 2034
Patent 9757406*PED | Expires: Jul 30, 2034
Patent 11116783*PED | Expires: Jul 30, 2034

EXCLUSIVITY:
Code: ODE-293 | Date: Mar 19, 2027
Code: PED | Date: Sep 19, 2027